FAERS Safety Report 6725730-8 (Version None)
Quarter: 2010Q2

REPORT INFORMATION
  Report Type: 
  Country: None (occurrence: None)
  Receive Date: 20100513
  Receipt Date: 20100513
  Transmission Date: 20101027
  Serious: No
  Sender: FDA-Public Use
  Company Number: None

PATIENT
  Sex: Female

DRUGS (1)
  1. GLEEVEC [Suspect]
     Indication: NEOPLASM MALIGNANT
     Dosage: 400MG DAILY BY MOUTH
     Route: 048
     Dates: start: 20090323

REACTIONS (2)
  - MUSCLE SPASMS [None]
  - MYALGIA [None]
